FAERS Safety Report 8182395-9 (Version None)
Quarter: 2012Q1

REPORT INFORMATION
  Report Type: 
  Country: None (occurrence: None)
  Receive Date: 20120303
  Receipt Date: 20120221
  Transmission Date: 20120608
  Serious: No
  Sender: FDA-Public Use
  Company Number: US-B.I. PHARMACEUTICALS,INC./RIDGEFIELD-2012-BP-03240BP

PATIENT
  Age: 78 Year
  Sex: Female

DRUGS (3)
  1. SIMVASTATIN [Concomitant]
  2. PRADAXA [Suspect]
     Dosage: 300 MG
     Route: 048
     Dates: start: 20110301
  3. COREG [Concomitant]

REACTIONS (2)
  - PARAESTHESIA ORAL [None]
  - MOUTH HAEMORRHAGE [None]
